FAERS Safety Report 17528498 (Version 1)
Quarter: 2020Q1

REPORT INFORMATION
  Report Type: Spontaneous
  Country: US (occurrence: US)
  Receive Date: 20200311
  Receipt Date: 20200311
  Transmission Date: 20200409
  Serious: No
  Sender: FDA-Public Use
  Company Number: US-TEVA-2020-US-1199086

PATIENT
  Sex: Male

DRUGS (9)
  1. FOSAMAX [Concomitant]
     Active Substance: ALENDRONATE SODIUM
  2. FISH OIL [Concomitant]
     Active Substance: FISH OIL
  3. MAGNESIUM [Concomitant]
     Active Substance: MAGNESIUM
  4. COPAXONE [Suspect]
     Active Substance: GLATIRAMER ACETATE
     Indication: MULTIPLE SCLEROSIS
     Dosage: 17.1429 MILLIGRAM/MILLILITERS DAILY; COPAXONE 40MG/ML THRICE A WEEK
     Route: 058
     Dates: start: 20150617
  5. CALCIUM [Concomitant]
     Active Substance: CALCIUM
  6. KEFLEX [Concomitant]
     Active Substance: CEPHALEXIN
  7. DESMOPRESSIN [Concomitant]
     Active Substance: DESMOPRESSIN
  8. BIOTIN [Concomitant]
     Active Substance: BIOTIN
  9. VITAMIN D3 [Concomitant]
     Active Substance: CHOLECALCIFEROL

REACTIONS (2)
  - Fall [Not Recovered/Not Resolved]
  - Wheelchair user [Unknown]
